FAERS Safety Report 4512401-1 (Version None)
Quarter: 2004Q4

REPORT INFORMATION
  Report Type: 
  Country: None (occurrence: None)
  Receive Date: 20041123
  Receipt Date: 20041105
  Transmission Date: 20050328
  Serious: Yes (Hospitalization)
  Sender: FDA-Public Use
  Company Number: ACO_0017_2004

PATIENT
  Age: 81 Year
  Sex: Female

DRUGS (4)
  1. TERNELIN [Suspect]
     Indication: HEADACHE
     Dosage: 2 MG QDAY PO
     Route: 048
     Dates: end: 20040810
  2. KETAS [Suspect]
     Dosage: 30 MG QDAY PO
     Route: 048
     Dates: end: 20040810
  3. CHINESE MEDICINE [Concomitant]
  4. GASMOTIN [Suspect]
     Dosage: 15 MG QDAY PO
     Route: 048
     Dates: end: 20040810

REACTIONS (8)
  - ALANINE AMINOTRANSFERASE INCREASED [None]
  - ASPARTATE AMINOTRANSFERASE INCREASED [None]
  - BLOOD ALKALINE PHOSPHATASE INCREASED [None]
  - BLOOD LACTATE DEHYDROGENASE INCREASED [None]
  - GAMMA-GLUTAMYLTRANSFERASE INCREASED [None]
  - HYPOAESTHESIA [None]
  - LIMB DISCOMFORT [None]
  - LIVER DISORDER [None]
